FAERS Safety Report 5948304-5 (Version None)
Quarter: 2008Q4

REPORT INFORMATION
  Report Type: 
  Country: None (occurrence: None)
  Receive Date: 20081110
  Receipt Date: 20081110
  Transmission Date: 20090506
  Serious: Yes (Other)
  Sender: FDA-Public Use
  Company Number: None

PATIENT
  Sex: Male
  Weight: 104.3273 kg

DRUGS (1)
  1. PLAVIX [Suspect]
     Indication: CARDIAC DISORDER
     Dosage: 1X DAILY PO
     Route: 048
     Dates: start: 20080814, end: 20081029

REACTIONS (4)
  - ASTHENIA [None]
  - CONFUSIONAL STATE [None]
  - MYALGIA [None]
  - OEDEMA [None]
